FAERS Safety Report 4726070-9 (Version None)
Quarter: 2005Q3

REPORT INFORMATION
  Report Type: 
  Country: None (occurrence: None)
  Receive Date: 20050727
  Receipt Date: 20050529
  Transmission Date: 20060218
  Serious: Yes (Hospitalization, Other)
  Sender: FDA-Public Use
  Company Number: PHRM2005FR01723

PATIENT
  Age: 71 Year
  Sex: Female
  Weight: 55 kg

DRUGS (2)
  1. ZOMETA [Suspect]
     Indication: MULTIPLE MYELOMA
     Dosage: 4 MG EVERY 6 WEEKS
     Route: 042
     Dates: start: 20030415, end: 20050404
  2. VELCADE [Concomitant]
     Indication: MULTIPLE MYELOMA
     Route: 042
     Dates: start: 20040927, end: 20050404

REACTIONS (7)
  - ACTINOMYCOSIS [None]
  - ASEPTIC NECROSIS BONE [None]
  - GINGIVAL PAIN [None]
  - JAW OPERATION [None]
  - PURULENT DISCHARGE [None]
  - SINUSITIS [None]
  - TOOTH ABSCESS [None]
